FAERS Safety Report 9364654 (Version 3)
Quarter: 2013Q3

REPORT INFORMATION
  Report Type: Spontaneous
  Country: IT (occurrence: IT)
  Receive Date: 20130624
  Receipt Date: 20130807
  Transmission Date: 20140515
  Serious: Yes (Other)
  Sender: FDA-Public Use
  Company Number: IT-BRISTOL-MYERS SQUIBB COMPANY-19028182

PATIENT
  Age: 92 Year
  Sex: Female

DRUGS (4)
  1. COUMADIN TABS 5 MG [Suspect]
     Indication: ATRIAL FIBRILLATION
     Route: 048
     Dates: start: 20080901, end: 20130602
  2. ENAPREN [Concomitant]
     Dosage: TABLET
  3. LASIX [Concomitant]
     Dosage: TABS
  4. NITRODERM TTS [Concomitant]
     Dosage: ^TRANSDERMAL PATCHES^
     Route: 062

REACTIONS (2)
  - Subdural haematoma [Recovering/Resolving]
  - Head injury [Unknown]
